FAERS Safety Report 25768000 (Version 1)
Quarter: 2025Q3

REPORT INFORMATION
  Report Type: Spontaneous
  Country: US (occurrence: US)
  Receive Date: 20250905
  Receipt Date: 20250905
  Transmission Date: 20251021
  Serious: No
  Sender: DOMPE FARMACEUTICI
  Company Number: US-FARMAPROD-202505-1714

PATIENT
  Sex: Female

DRUGS (19)
  1. OXERVATE [Suspect]
     Active Substance: CENEGERMIN-BKBJ
     Indication: Neurotrophic keratopathy
     Route: 047
     Dates: start: 20250517
  2. VITAMIN B COMPLEX [Concomitant]
     Active Substance: CYANOCOBALAMIN\DEXPANTHENOL\NIACINAMIDE\PYRIDOXINE HYDROCHLORIDE\RIBOFLAVIN 5^-PHOSPHATE SODIUM\THIA
  3. PROBIOTIC-10 [Concomitant]
  4. COLACE [Concomitant]
     Active Substance: DOCUSATE SODIUM
  5. CALCIUM [Concomitant]
     Active Substance: CALCIUM
  6. VITAMIN D3-VITAMIN K2 [Concomitant]
  7. TRAZODONE HCL [Concomitant]
     Active Substance: TRAZODONE HYDROCHLORIDE
  8. CELEBREX [Concomitant]
     Active Substance: CELECOXIB
  9. CLONAZEPAM [Concomitant]
     Active Substance: CLONAZEPAM
  10. ESTRADIOL [Concomitant]
     Active Substance: ESTRADIOL
  11. MIEBO [Concomitant]
     Active Substance: PERFLUOROHEXYLOCTANE
  12. XIIDRA [Concomitant]
     Active Substance: LIFITEGRAST
  13. EFFEXOR XR [Concomitant]
     Active Substance: VENLAFAXINE HYDROCHLORIDE
  14. NEUPRO [Concomitant]
     Active Substance: ROTIGOTINE
  15. MIRTAZAPINE [Concomitant]
     Active Substance: MIRTAZAPINE
  16. SYNTHROID [Concomitant]
     Active Substance: LEVOTHYROXINE SODIUM
  17. GEMTESA [Concomitant]
     Active Substance: VIBEGRON
  18. CARBIDOPA\LEVODOPA [Concomitant]
     Active Substance: CARBIDOPA\LEVODOPA
  19. CARBIDOPA [Concomitant]
     Active Substance: CARBIDOPA

REACTIONS (6)
  - Anxiety [Unknown]
  - Product dose omission issue [Unknown]
  - Eye irritation [Unknown]
  - Eye irritation [Unknown]
  - Eyelid pain [Unknown]
  - Hordeolum [Unknown]
